FAERS Safety Report 21567172 (Version 1)
Quarter: 2022Q4

REPORT INFORMATION
  Report Type: Spontaneous
  Country: US (occurrence: US)
  Receive Date: 20221108
  Receipt Date: 20221108
  Transmission Date: 20230112
  Serious: No
  Sender: FDA-Public Use
  Company Number: US-SA-SAC20221102000420

PATIENT
  Sex: Male

DRUGS (15)
  1. DUPIXENT [Suspect]
     Active Substance: DUPILUMAB
     Indication: Dermatitis atopic
     Dosage: 300 MG/2ML; EVERY OTHER WEEK
     Route: 058
     Dates: start: 20210903
  2. AZELASTINE [Concomitant]
     Active Substance: AZELASTINE
  3. BUSPIRONE [Concomitant]
     Active Substance: BUSPIRONE HYDROCHLORIDE
  4. CETIRIZINE [Concomitant]
     Active Substance: CETIRIZINE HYDROCHLORIDE
  5. CICLOPIROX [Concomitant]
     Active Substance: CICLOPIROX
  6. CLONAZEPAM [Concomitant]
     Active Substance: CLONAZEPAM
  7. ESCITALOPRAM [Concomitant]
     Active Substance: ESCITALOPRAM OXALATE
  8. EUCRISA [Concomitant]
     Active Substance: CRISABOROLE
  9. FAMOTIDINE [Concomitant]
     Active Substance: FAMOTIDINE
  10. PIMECROLIMUS [Concomitant]
     Active Substance: PIMECROLIMUS
  11. PREDNISOLONE [Concomitant]
     Active Substance: PREDNISOLONE
  12. TRETINOIN [Concomitant]
     Active Substance: TRETINOIN
  13. TRIAMCINOLONE [Concomitant]
     Active Substance: TRIAMCINOLONE
  14. AMITRIPTYLINE [Concomitant]
     Active Substance: AMITRIPTYLINE
  15. SULFACETAMIDE [Concomitant]
     Active Substance: SULFACETAMIDE

REACTIONS (1)
  - Injection site reaction [Not Recovered/Not Resolved]
